FAERS Safety Report 4948950-1 (Version None)
Quarter: 2006Q1

REPORT INFORMATION
  Report Type: 
  Country: None (occurrence: None)
  Receive Date: 20060321
  Receipt Date: 20060310
  Transmission Date: 20060701
  Serious: Yes (Hospitalization)
  Sender: FDA-Public Use
  Company Number: US-JNJFOC-20060302790

PATIENT
  Sex: Female
  Weight: 83.92 kg

DRUGS (22)
  1. REMICADE [Suspect]
     Route: 042
  2. REMICADE [Suspect]
     Route: 042
  3. REMICADE [Suspect]
     Route: 042
  4. REMICADE [Suspect]
     Indication: RHEUMATOID ARTHRITIS
     Route: 042
  5. PREDNISONE TAB [Concomitant]
     Indication: RHEUMATOID ARTHRITIS
  6. DARVOCET [Concomitant]
  7. DARVOCET [Concomitant]
     Indication: PAIN
  8. PRAVACHOL [Concomitant]
  9. COREG [Concomitant]
  10. HUMALOG AND ZINC [Concomitant]
     Dosage: 2-3 INJECTIONS PER DAY DEPENDING ON BLOOD SURGAR
     Route: 050
  11. ARAVA [Concomitant]
     Indication: RHEUMATOID ARTHRITIS
  12. ARTHROTEC [Concomitant]
  13. ARTHROTEC [Concomitant]
  14. ZANTAC [Concomitant]
  15. POLY IRON [Concomitant]
  16. POLY IRON [Concomitant]
  17. TERAVIDONE [Concomitant]
  18. PROZAC [Concomitant]
  19. BIRTH CONTROL [Concomitant]
     Dosage: SEASONAL
  20. CALCIUM GLUCONATE [Concomitant]
  21. FOLIC ACID [Concomitant]
  22. VITAMINS [Concomitant]

REACTIONS (4)
  - INFUSION RELATED REACTION [None]
  - NODULE [None]
  - RESPIRATORY DISTRESS [None]
  - VOMITING [None]
